FAERS Safety Report 9415310 (Version 1)
Quarter: 2013Q3

REPORT INFORMATION
  Report Type: Spontaneous
  Country: FR (occurrence: FR)
  Receive Date: 20130723
  Receipt Date: 20130723
  Transmission Date: 20140515
  Serious: Yes (Hospitalization, Other)
  Sender: FDA-Public Use
  Company Number: FR-ASTRAZENECA-2013SE20271

PATIENT
  Age: 17821 Day
  Sex: Female

DRUGS (3)
  1. XEROQUEL [Suspect]
     Indication: PSYCHOTIC DISORDER
     Route: 048
     Dates: start: 20130127, end: 20130327
  2. ZOPICLONE [Concomitant]
     Indication: SLEEP DISORDER
     Route: 048
     Dates: start: 20130128
  3. FORLAX [Concomitant]

REACTIONS (7)
  - Nausea [Unknown]
  - Post lumbar puncture syndrome [Unknown]
  - Headache [Unknown]
  - Vomiting [Unknown]
  - Dyskinesia [Unknown]
  - Orthostatic hypotension [Recovered/Resolved]
  - Dizziness [Unknown]
